FAERS Safety Report 7597443-4 (Version None)
Quarter: 2011Q3

REPORT INFORMATION
  Report Type: 
  Country: None (occurrence: None)
  Receive Date: 20110708
  Receipt Date: 20110628
  Transmission Date: 20111222
  Serious: Yes (Other)
  Sender: FDA-Public Use
  Company Number: PHHY2011JP18627

PATIENT
  Age: 10 Year
  Sex: Female

DRUGS (4)
  1. CELLCEPT [Concomitant]
  2. METHYLPREDNISOLONE [Concomitant]
  3. PROGRAF [Suspect]
     Indication: TRANSPLANT
  4. SIMULECT [Suspect]
     Indication: RENAL TRANSPLANT
     Dosage: 10 MG
     Route: 042
     Dates: start: 20110302

REACTIONS (2)
  - BLOOD PRESSURE DECREASED [None]
  - TOXIC ENCEPHALOPATHY [None]
